FAERS Safety Report 8393898-6 (Version None)
Quarter: 2012Q2

REPORT INFORMATION
  Report Type: 
  Country: None (occurrence: None)
  Receive Date: 20120530
  Receipt Date: 20120409
  Transmission Date: 20120825
  Serious: Yes (Hospitalization, Disabling, Other)
  Sender: FDA-Public Use
  Company Number: BR-BAYER-2012-034664

PATIENT
  Age: 58 Year
  Sex: Female

DRUGS (9)
  1. CLONAZEPAM [Concomitant]
     Indication: SLEEP DISORDER THERAPY
     Dosage: 1 DF, QD
     Route: 048
  2. BETAJECT COMFORT [Suspect]
     Indication: DEVICE THERAPY
  3. CHLOROTHIAZIDE [Concomitant]
     Indication: HYPERTENSION
     Dosage: 1 DF, QD
     Route: 048
  4. AZATHIOPRINE [Concomitant]
     Indication: MULTIPLE SCLEROSIS
     Dosage: 3 DF, QD
     Route: 048
     Dates: end: 20111201
  5. SIMVASTATIN [Concomitant]
     Indication: BLOOD CHOLESTEROL INCREASED
     Dosage: 2 DF, QD
     Route: 048
  6. ASPIRIN [Concomitant]
     Indication: ISCHAEMIC HEART DISEASE PROPHYLAXIS
     Dosage: 1 DF, QD
     Route: 048
     Dates: start: 20100101
  7. ENALAPRIL MALEATE [Concomitant]
     Indication: HYPERTENSION
     Dosage: 2 DF, QD
     Route: 048
  8. BETASERON [Suspect]
     Indication: SECONDARY PROGRESSIVE MULTIPLE SCLEROSIS
     Dosage: 1 ML, QOD
     Route: 058
     Dates: start: 20010101
  9. ATENOLOL [Concomitant]
     Indication: HYPERTENSION
     Dosage: 1 DF, QD
     Route: 048

REACTIONS (15)
  - DIPLEGIA [None]
  - MOBILITY DECREASED [None]
  - BACK PAIN [None]
  - NO ADVERSE EVENT [None]
  - MULTIPLE SCLEROSIS [None]
  - WEIGHT DECREASED [None]
  - MACULE [None]
  - LOWER EXTREMITY MASS [None]
  - MUSCULAR WEAKNESS [None]
  - DECREASED APPETITE [None]
  - URINARY INCONTINENCE [None]
  - INJECTION SITE PAIN [None]
  - INJECTION SITE HAEMATOMA [None]
  - PYREXIA [None]
  - CRYING [None]
